FAERS Safety Report 25919376 (Version 1)
Quarter: 2025Q4

REPORT INFORMATION
  Report Type: Spontaneous
  Country: US (occurrence: US)
  Receive Date: 20251014
  Receipt Date: 20251014
  Transmission Date: 20260118
  Serious: Yes (Death, Hospitalization, Other)
  Sender: AMNEAL
  Company Number: US-AMNEAL PHARMACEUTICALS-2025-AMRX-03873

PATIENT
  Age: 69 Year
  Sex: Male

DRUGS (1)
  1. ADRENACLICK [Suspect]
     Active Substance: EPINEPHRINE
     Indication: Allergy to arthropod sting
     Dosage: 0.5 MILLIGRAM
     Route: 030

REACTIONS (7)
  - Cardiac arrest [Fatal]
  - Cardiogenic shock [Unknown]
  - Kounis syndrome [Unknown]
  - Disseminated intravascular coagulation [Unknown]
  - Respiratory failure [Unknown]
  - Hepatic failure [Unknown]
  - Brain injury [Unknown]
